FAERS Safety Report 5780888-2 (Version None)
Quarter: 2008Q2

REPORT INFORMATION
  Report Type: 
  Country: None (occurrence: None)
  Receive Date: 20080620
  Receipt Date: 20080610
  Transmission Date: 20081010
  Serious: Yes (Other)
  Sender: FDA-Public Use
  Company Number: AU-PFIZER INC-2008044443

PATIENT
  Sex: Female
  Weight: 65 kg

DRUGS (7)
  1. LYRICA [Suspect]
     Indication: DIABETIC NEUROPATHY
     Route: 048
     Dates: start: 20080421, end: 20080509
  2. LYRICA [Suspect]
     Indication: INTERVERTEBRAL DISC DISORDER
  3. LYRICA [Suspect]
     Indication: PAIN IN EXTREMITY
  4. ACETAMINOPHEN W/ CODEINE [Concomitant]
  5. AROPAX [Concomitant]
  6. ENDONE [Concomitant]
     Route: 048
  7. TRAMADOL - SLOW RELEASE [Concomitant]
     Route: 048
     Dates: start: 20080408

REACTIONS (2)
  - BURNING SENSATION [None]
  - PAIN IN EXTREMITY [None]
